FAERS Safety Report 8961183 (Version 3)
Quarter: 2013Q1

REPORT INFORMATION
  Report Type: Spontaneous
  Country: JP (occurrence: JP)
  Receive Date: 20121212
  Receipt Date: 20130114
  Transmission Date: 20140127
  Serious: Yes (Other)
  Sender: FDA-Public Use
  Company Number: JP-GLAXOSMITHKLINE-B0845435A

PATIENT
  Sex: Male

DRUGS (7)
  1. LAMICTAL [Suspect]
     Indication: CONVULSION
     Dosage: 50MG TWICE PER DAY
     Route: 048
     Dates: start: 20120618
  2. E KEPPRA [Suspect]
     Indication: CONVULSION
     Dosage: 500MG THREE TIMES PER DAY
     Route: 048
     Dates: start: 20120416
  3. PHENOBAL [Concomitant]
     Indication: CONVULSION
     Dosage: 23.3MG THREE TIMES PER DAY
     Route: 048
  4. TEGRETOL [Concomitant]
     Indication: CONVULSION
     Dosage: 50MG THREE TIMES PER DAY
     Route: 048
  5. RIVOTRIL [Concomitant]
     Indication: CONVULSION
     Dosage: .33MG THREE TIMES PER DAY
     Route: 048
  6. GABAPEN [Concomitant]
     Indication: CONVULSION
     Dosage: 400MG THREE TIMES PER DAY
     Route: 048
  7. RISPERDAL [Concomitant]
     Indication: CONVULSION
     Dosage: 1MG PER DAY
     Route: 048

REACTIONS (2)
  - Pleural effusion [Recovering/Resolving]
  - Bedridden [Unknown]
